FAERS Safety Report 9206163 (Version 2)
Quarter: 2013Q2

REPORT INFORMATION
  Report Type: Spontaneous
  Country: US (occurrence: US)
  Receive Date: 20130403
  Receipt Date: 20130417
  Transmission Date: 20140414
  Serious: No
  Sender: FDA-Public Use
  Company Number: US-PFIZER INC-2013102191

PATIENT
  Age: 60 Year
  Sex: Male
  Weight: 110.66 kg

DRUGS (1)
  1. VIAGRA [Suspect]
     Dosage: 50 MG, AS NEEDED
     Route: 048
     Dates: start: 201303

REACTIONS (1)
  - Drug ineffective [Unknown]
